FAERS Safety Report 20969418 (Version 1)
Quarter: 2022Q2

REPORT INFORMATION
  Report Type: Spontaneous
  Country: US (occurrence: US)
  Receive Date: 20220616
  Receipt Date: 20220616
  Transmission Date: 20220721
  Serious: No
  Sender: FDA-Public Use
  Company Number: US-PFIZER INC-202200843055

PATIENT
  Age: 70 Year
  Sex: Female

DRUGS (4)
  1. PAXLOVID [Suspect]
     Active Substance: NIRMATRELVIR\RITONAVIR
     Indication: COVID-19 treatment
     Dosage: UNK
     Dates: start: 20220609, end: 20220613
  2. NATURE^S BOUNTY D3 [Concomitant]
     Dosage: UNK UNK, DAILY
  3. NATURE^S BOUNTY VITAMIN C [Concomitant]
     Dosage: UNK, DAILY
  4. NATURE^S BOUNTY ZINC GLUCONATE [Concomitant]
     Dosage: UNK, DAILY

REACTIONS (3)
  - Dysgeusia [Recovered/Resolved]
  - Diarrhoea [Recovered/Resolved]
  - Lymphadenopathy [Recovered/Resolved]

NARRATIVE: CASE EVENT DATE: 20220609
